FAERS Safety Report 5229169-6 (Version None)
Quarter: 2007Q1

REPORT INFORMATION
  Report Type: 
  Country: None (occurrence: None)
  Receive Date: 20061201
  Receipt Date: 20060922
  Transmission Date: 20070707
  Serious: No
  Sender: FDA-Public Use
  Company Number: US200609006094

PATIENT
  Age: 58 Year
  Sex: Male

DRUGS (8)
  1. CYMBALTA [Suspect]
     Indication: DEPRESSION
     Dosage: 30 MG
     Dates: start: 20060922
  2. ZYPREXA [Suspect]
     Indication: PANIC ATTACK
     Dosage: 2.5 MG
     Dates: start: 20041101, end: 20060501
  3. BUSPAR /AUS/ (BUSPIRONE HYDROCHLORIDE) [Concomitant]
  4. PROZAC [Concomitant]
  5. NEXIUM /UNK/ (ESOMEPRAZOLE) [Concomitant]
  6. CELEBREX /UNK/(CELECOXIB) [Concomitant]
  7. VALIUM /NET/(DIAZEPAM) [Concomitant]
  8. PERCOCET [Concomitant]

REACTIONS (5)
  - FEELING HOT [None]
  - FLUSHING [None]
  - NASAL DRYNESS [None]
  - STAPHYLOCOCCAL INFECTION [None]
  - TACHYCARDIA [None]
